FAERS Safety Report 23042373 (Version 14)
Quarter: 2024Q1

REPORT INFORMATION
  Report Type: Report from Study
  Country: PT (occurrence: PT)
  Receive Date: 20231008
  Receipt Date: 20240310
  Transmission Date: 20240410
  Serious: Yes (Other)
  Sender: FDA-Public Use
  Company Number: PT-ABBVIE-5423308

PATIENT
  Age: 71 Year
  Sex: Female

DRUGS (9)
  1. CARBIDOPA\LEVODOPA [Suspect]
     Active Substance: CARBIDOPA\LEVODOPA
     Indication: Parkinson^s disease
     Dosage: 20 MG + 5 MG.?FREQUENCY TEXT: MORN:9CC;MAINT:3.6CC/H;EXTR:1CC,
     Route: 050
     Dates: start: 20210810
  2. CARBIDOPA\LEVODOPA [Suspect]
     Active Substance: CARBIDOPA\LEVODOPA
     Dosage: 20 MG + 5 MG (GASTRIC)?MORN:20CC;MAINT:7.3CC/H;EXTR:6CC
     Route: 050
     Dates: start: 20231023, end: 20231025
  3. CARBIDOPA\LEVODOPA [Suspect]
     Active Substance: CARBIDOPA\LEVODOPA
     Dosage: 20 MG + 5 MG, MORN:20CC;MAINT:7.3CC/H;EXTR:6CC
     Route: 050
     Dates: end: 20231022
  4. CYANOCOBALAMIN [Concomitant]
     Active Substance: CYANOCOBALAMIN
     Indication: Product used for unknown indication
     Dosage: START DATE TEXT: BEFORE DUODOPA
  5. OPICAPONE [Concomitant]
     Active Substance: OPICAPONE
     Indication: Parkinson^s disease
     Dosage: FORM STRENGTH: 50 MILLIGRAMS
     Dates: start: 20210824
  6. RIVOTRIL [Concomitant]
     Active Substance: CLONAZEPAM
     Indication: Product used for unknown indication
     Dosage: FORM STRENGTH: 2 MILLIGRAMS?START DATE TEXT: BEFORE DUODOPA?0.5 TABLET
  7. FOLIC ACID [Concomitant]
     Active Substance: FOLIC ACID
     Indication: Product used for unknown indication
     Dosage: START DATE TEXT: BEFORE DUODOPA
  8. DOMPERIDONE [Concomitant]
     Active Substance: DOMPERIDONE
     Indication: Product used for unknown indication
     Dosage: TIME INTERVAL: 0.33333333 DAYS: START DATE TEXT: BEFORE DUODOPA
  9. NEUPRO [Concomitant]
     Active Substance: ROTIGOTINE
     Indication: Parkinson^s disease
     Dosage: FORM STRENGTH: 6 MILLIGRAMS
     Dates: start: 20210824

REACTIONS (7)
  - Klebsiella infection [Recovered/Resolved]
  - Stoma site discharge [Recovered/Resolved]
  - Stoma site erythema [Recovered/Resolved]
  - Off label use [Recovered/Resolved]
  - Stoma site discharge [Unknown]
  - Stoma site pain [Recovered/Resolved]
  - Candida infection [Recovered/Resolved]

NARRATIVE: CASE EVENT DATE: 20230925
